FAERS Safety Report 7047667-X (Version None)
Quarter: 2010Q4

REPORT INFORMATION
  Report Type: 
  Country: None (occurrence: None)
  Receive Date: 20101015
  Receipt Date: 20101011
  Transmission Date: 20110411
  Serious: Yes (Hospitalization)
  Sender: FDA-Public Use
  Company Number: US-MERCK-1010USA00146

PATIENT
  Age: 57 Year
  Sex: Male

DRUGS (6)
  1. VYTORIN [Suspect]
     Indication: BLOOD CHOLESTEROL
     Route: 048
     Dates: start: 20000101, end: 20100901
  2. ASPIRIN [Concomitant]
     Route: 065
  3. METOPROLOL [Concomitant]
     Route: 065
  4. PROTONIX [Concomitant]
     Route: 065
  5. AMBIEN [Concomitant]
     Route: 065
  6. OXYCONTIN [Concomitant]
     Indication: BACK PAIN
     Route: 065

REACTIONS (10)
  - ABDOMINAL PAIN UPPER [None]
  - BACK PAIN [None]
  - HEPATIC FAILURE [None]
  - HYPERTENSION [None]
  - MUSCLE RUPTURE [None]
  - ORTHOSTATIC HYPOTENSION [None]
  - PNEUMATOSIS INTESTINALIS [None]
  - RENAL FAILURE [None]
  - ROTATOR CUFF SYNDROME [None]
  - SLEEP DISORDER [None]
